FAERS Safety Report 24763601 (Version 3)
Quarter: 2025Q1

REPORT INFORMATION
  Report Type: Spontaneous
  Country: GB (occurrence: GB)
  Receive Date: 20241223
  Receipt Date: 20250103
  Transmission Date: 20250408
  Serious: Yes (Death, Other)
  Sender: MERZ
  Company Number: GB-MRZWEB-2024120000132

PATIENT

DRUGS (18)
  1. BOCOUTURE [Suspect]
     Active Substance: BOTULINUM TOXIN TYPE A
     Indication: Skin wrinkling
     Dosage: 70 INTERNATIONAL UNIT
     Dates: start: 20240604, end: 20240604
  2. BOCOUTURE [Suspect]
     Active Substance: BOTULINUM TOXIN TYPE A
     Indication: Skin cosmetic procedure
     Dosage: 66 INTERNATIONAL UNIT
     Dates: start: 20180525, end: 20180525
  3. BOCOUTURE [Suspect]
     Active Substance: BOTULINUM TOXIN TYPE A
     Indication: Skin cosmetic procedure
     Dosage: 66 INTERNATIONAL UNIT
     Dates: start: 20190325, end: 20190325
  4. BOCOUTURE [Suspect]
     Active Substance: BOTULINUM TOXIN TYPE A
     Indication: Skin wrinkling
     Dosage: 66 INTERNATIONAL UNIT
     Dates: start: 20190612, end: 20190612
  5. BOCOUTURE [Suspect]
     Active Substance: BOTULINUM TOXIN TYPE A
     Dosage: 66 INTERNATIONAL UNIT
     Dates: start: 20190918, end: 20190918
  6. BOCOUTURE [Suspect]
     Active Substance: BOTULINUM TOXIN TYPE A
     Dosage: 66 INTERNATIONAL UNIT
     Dates: start: 20200106, end: 20200106
  7. BOCOUTURE [Suspect]
     Active Substance: BOTULINUM TOXIN TYPE A
     Dosage: 66 INTERNATIONAL UNIT
     Dates: start: 20230928, end: 20230928
  8. UNSPECIFIED INGREDIENT [Suspect]
     Active Substance: UNSPECIFIED INGREDIENT
     Indication: Product used for unknown indication
  9. RADIESSE [Concomitant]
     Active Substance: TRIBASIC CALCIUM PHOSPHATE
     Indication: Skin cosmetic procedure
     Dates: start: 20240717, end: 20240717
  10. ACETAMINOPHEN\ASCORBIC ACID [Concomitant]
     Active Substance: ACETAMINOPHEN\ASCORBIC ACID
     Indication: Headache
  11. ANTIHISTAMINES NOS [Concomitant]
     Active Substance: ANTIHISTAMINES NOS
     Indication: Seasonal allergy
  12. FERROGRAD [FERROUS SULFATE EXSICCATED] [Concomitant]
     Indication: Anaemia
  13. BOTOX [Concomitant]
     Active Substance: ONABOTULINUMTOXINA
     Indication: Skin wrinkling
     Dates: start: 20160810, end: 20160810
  14. BOTOX [Concomitant]
     Active Substance: ONABOTULINUMTOXINA
     Indication: Skin cosmetic procedure
     Dates: start: 20170609, end: 20170609
  15. BOTOX [Concomitant]
     Active Substance: ONABOTULINUMTOXINA
     Indication: Skin wrinkling
  16. BOTOX [Concomitant]
     Active Substance: ONABOTULINUMTOXINA
     Indication: Skin cosmetic procedure
  17. COLLAGEN [Concomitant]
     Active Substance: COLLAGEN
  18. HYALURONIC ACID [Concomitant]
     Active Substance: HYALURONIC ACID
     Dates: start: 2001, end: 2001

REACTIONS (4)
  - Upper gastrointestinal haemorrhage [Fatal]
  - Duodenal ulcer [Fatal]
  - Metastatic neoplasm [Fatal]
  - Off label use [Unknown]

NARRATIVE: CASE EVENT DATE: 20240101
